FAERS Safety Report 6139606-0 (Version None)
Quarter: 2009Q1

REPORT INFORMATION
  Report Type: 
  Country: None (occurrence: None)
  Receive Date: 20090330
  Receipt Date: 20090330
  Transmission Date: 20090719
  Serious: No
  Sender: FDA-Public Use
  Company Number: None

PATIENT
  Age: 59 Year
  Sex: Male

DRUGS (1)
  1. METHADONE HCL [Suspect]
     Indication: PAIN
     Dosage: 50 MG ONCE PO
     Route: 048
     Dates: start: 20090120, end: 20090121

REACTIONS (12)
  - BLOOD GLUCOSE DECREASED [None]
  - BLOOD GLUCOSE INCREASED [None]
  - BODY TEMPERATURE DECREASED [None]
  - CARDIO-RESPIRATORY ARREST [None]
  - CONFUSIONAL STATE [None]
  - LETHARGY [None]
  - MIOSIS [None]
  - PAIN IN EXTREMITY [None]
  - RESPIRATORY DEPRESSION [None]
  - RESTLESSNESS [None]
  - SEDATION [None]
  - UNRESPONSIVE TO STIMULI [None]
